FAERS Safety Report 25919198 (Version 1)
Quarter: 2025Q4

REPORT INFORMATION
  Report Type: Spontaneous
  Country: US (occurrence: None)
  Receive Date: 20251013
  Receipt Date: 20251013
  Transmission Date: 20260117
  Serious: Yes (Hospitalization)
  Sender: FDA-CTU
  Company Number: None

PATIENT
  Sex: Male

DRUGS (8)
  1. TRIUMEQ [Suspect]
     Active Substance: ABACAVIR SULFATE\DOLUTEGRAVIR SODIUM\LAMIVUDINE
     Indication: HIV infection
     Dosage: 1 TABLET  DOSAFE FORM-DF DAILY ORAL?
     Route: 048
  2. invokaka 300mg tablets [Concomitant]
  3. AMLODIPINE [Concomitant]
     Active Substance: AMLODIPINE BESYLATE
  4. Breo Ellipta 100-25mcg inhaler [Concomitant]
  5. rosuvastatin 40mg tablets [Concomitant]
  6. PRASUGREL [Concomitant]
     Active Substance: PRASUGREL
  7. valacyclovir 500mg tablets tablets [Concomitant]
  8. ipratropium/albuterol 0.513mg nebulizer [Concomitant]

REACTIONS (1)
  - Albinism [None]
